FAERS Safety Report 8572902-6 (Version None)
Quarter: 2012Q2

REPORT INFORMATION
  Report Type: 
  Country: None (occurrence: None)
  Receive Date: 20120420
  Receipt Date: 20120420
  Transmission Date: 20120825
  Serious: Yes (Other)
  Sender: FDA-Public Use
  Company Number: ALL1-2011-03493

PATIENT
  Age: 8 Year
  Sex: Male
  Weight: 39.9 kg

DRUGS (5)
  1. VYVANSE [Suspect]
     Indication: ATTENTION DEFICIT/HYPERACTIVITY DISORDER
     Dosage: 30;40;60 MG, 1X/DAY:QD, TWO 30 MG CAPSULES, 1X/DAY, QD) ORAL
     Route: 048
     Dates: start: 20110916, end: 20110917
  2. VYVANSE [Suspect]
     Indication: ATTENTION DEFICIT/HYPERACTIVITY DISORDER
     Dosage: 30;40;60 MG, 1X/DAY:QD, TWO 30 MG CAPSULES, 1X/DAY, QD) ORAL
     Route: 048
     Dates: start: 20110914, end: 20110915
  3. VYVANSE [Suspect]
     Indication: ATTENTION DEFICIT/HYPERACTIVITY DISORDER
     Dosage: 30;40;60 MG, 1X/DAY:QD, TWO 30 MG CAPSULES, 1X/DAY, QD) ORAL
     Route: 048
     Dates: start: 20110918, end: 20110919
  4. CLONIDINE [Concomitant]
  5. CEREFOLIN NAC (CALCIUM MEFOLINATE, CYANOCOBALAMIN, PYRIDOXINE, RIBOFLA [Concomitant]

REACTIONS (1)
  - STEVENS-JOHNSON SYNDROME [None]
